FAERS Safety Report 8494323-7 (Version None)
Quarter: 2012Q2

REPORT INFORMATION
  Report Type: 
  Country: None (occurrence: None)
  Receive Date: 20120628
  Receipt Date: 20120615
  Transmission Date: 20120825
  Serious: Yes (Life-Threatening, Hospitalization)
  Sender: FDA-Public Use
  Company Number: 2012P1044309

PATIENT
  Age: 26 Month
  Sex: Male
  Weight: 12.7 kg

DRUGS (2)
  1. NADOLOL [Concomitant]
  2. FLECAINIDE ACETATE [Suspect]
     Indication: NODAL ARRHYTHMIA
     Dosage: 20 MG;TID

REACTIONS (10)
  - DYSPNOEA [None]
  - BRADYCARDIA [None]
  - PALLOR [None]
  - SOMNOLENCE [None]
  - INCORRECT DOSE ADMINISTERED [None]
  - UNRESPONSIVE TO STIMULI [None]
  - BUNDLE BRANCH BLOCK LEFT [None]
  - TOXICITY TO VARIOUS AGENTS [None]
  - FEELING COLD [None]
  - TACHYCARDIA [None]
